FAERS Safety Report 6816170-1 (Version None)
Quarter: 2010Q3

REPORT INFORMATION
  Report Type: 
  Country: None (occurrence: None)
  Receive Date: 20100702
  Receipt Date: 20100702
  Transmission Date: 20110219
  Serious: Yes (Other)
  Sender: FDA-Public Use
  Company Number: None

PATIENT
  Age: 53 Year
  Sex: Female
  Weight: 58.9676 kg

DRUGS (1)
  1. TRIFLURIDINE [Suspect]
     Indication: HERPES OPHTHALMIC
     Dosage: ONE DROP EVERY 2 HOURS UP TO 9 EVERY 2 HOURS
     Dates: start: 20100617, end: 20100630

REACTIONS (5)
  - EYE DISCHARGE [None]
  - EYE PAIN [None]
  - EYE PRURITUS [None]
  - EYE SWELLING [None]
  - OCULAR HYPERAEMIA [None]
